FAERS Safety Report 17444770 (Version 1)
Quarter: 2020Q1

REPORT INFORMATION
  Report Type: Spontaneous
  Country: US (occurrence: US)
  Receive Date: 20200207
  Receipt Date: 20200207
  Transmission Date: 20200409
  Serious: No
  Sender: FDA-Public Use
  Company Number: None

PATIENT
  Age: 47 Year
  Sex: Female

DRUGS (1)
  1. BOTOX [Suspect]
     Active Substance: ONABOTULINUMTOXINA
     Dosage: ?          OTHER FREQUENCY:PRN ;?
     Route: 030
     Dates: start: 201812

REACTIONS (3)
  - Therapy cessation [None]
  - Product use issue [None]
  - Symptom recurrence [None]

NARRATIVE: CASE EVENT DATE: 20200207
